FAERS Safety Report 10841186 (Version 1)
Quarter: 2015Q1

REPORT INFORMATION
  Report Type: Spontaneous
  Country: US (occurrence: None)
  Receive Date: 20150218
  Receipt Date: 20150218
  Transmission Date: 20150721
  Serious: No
  Sender: FDA-Public Use
  Company Number: None

PATIENT
  Age: 51 Year
  Sex: Male

DRUGS (12)
  1. RITUXAN [Concomitant]
     Active Substance: RITUXIMAB
  2. RITALIN SR [Concomitant]
     Active Substance: METHYLPHENIDATE HYDROCHLORIDE
  3. GABAPENTIN. [Concomitant]
     Active Substance: GABAPENTIN
  4. SOLU-MEDROL [Concomitant]
     Active Substance: METHYLPREDNISOLONE SODIUM SUCCINATE
  5. AMPYRA [Suspect]
     Active Substance: DALFAMPRIDINE
     Indication: MULTIPLE SCLEROSIS
     Dosage: 10MG, ???, ORAL
     Route: 048
     Dates: start: 201102
  6. OLANZAPINE. [Concomitant]
     Active Substance: OLANZAPINE
  7. FAMOTIDINE. [Concomitant]
     Active Substance: FAMOTIDINE
  8. MAXITROL OPHT OINT [Concomitant]
  9. PEPCID [Concomitant]
     Active Substance: FAMOTIDINE
  10. ZOCOR [Concomitant]
     Active Substance: SIMVASTATIN
  11. SUMATRITAN [Concomitant]
  12. SYPREXA [Concomitant]

REACTIONS (1)
  - Urinary tract infection [None]

NARRATIVE: CASE EVENT DATE: 20140530
